FAERS Safety Report 7597414-8 (Version None)
Quarter: 2011Q3

REPORT INFORMATION
  Report Type: 
  Country: None (occurrence: None)
  Receive Date: 20110708
  Receipt Date: 20110627
  Transmission Date: 20111222
  Serious: Yes (Other)
  Sender: FDA-Public Use
  Company Number: PHHY2011FR57389

PATIENT
  Sex: Female

DRUGS (2)
  1. ILARIS [Suspect]
     Dosage: 150 MG
     Route: 058
     Dates: start: 20110513
  2. ILARIS [Suspect]
     Indication: STILL'S DISEASE ADULT ONSET
     Dosage: 150 MG
     Route: 058
     Dates: start: 20110318

REACTIONS (9)
  - PYREXIA [None]
  - CYTOLYTIC HEPATITIS [None]
  - CHOLESTASIS [None]
  - ALANINE AMINOTRANSFERASE INCREASED [None]
  - ASPARTATE AMINOTRANSFERASE INCREASED [None]
  - LIVER FUNCTION TEST ABNORMAL [None]
  - GAMMA-GLUTAMYLTRANSFERASE INCREASED [None]
  - BLOOD ALKALINE PHOSPHATASE INCREASED [None]
  - C-REACTIVE PROTEIN INCREASED [None]
